FAERS Safety Report 9162617 (Version 1)
Quarter: 2013Q1

REPORT INFORMATION
  Report Type: Report from Study
  Country: US (occurrence: US)
  Receive Date: 20130314
  Receipt Date: 20130314
  Transmission Date: 20140127
  Serious: No
  Sender: FDA-Public Use
  Company Number: US-VERTEX PHARMACEUTICALS INC.-2013-003427

PATIENT
  Age: 30 Year
  Sex: Male
  Weight: 82 kg

DRUGS (4)
  1. VX-950 (TELAPREVIR) [Suspect]
     Indication: HEPATITIS C
     Dosage: UNK
     Route: 048
     Dates: start: 20130228
  2. PEGASYS [Suspect]
     Indication: HEPATITIS C
     Dosage: 180 MCG/M
     Dates: start: 20130228
  3. RIBAVIRIN [Suspect]
     Indication: HEPATITIS C
     Dosage: 200 MG, UNK
     Dates: start: 20130228
  4. TYLENOL [Concomitant]
     Dosage: 325 MG, UNK

REACTIONS (10)
  - Depression [Unknown]
  - Vision blurred [Unknown]
  - Ejaculation delayed [Unknown]
  - Anxiety [Unknown]
  - Irritability [Unknown]
  - Decreased appetite [Unknown]
  - Pain [Unknown]
  - Fatigue [Unknown]
  - Painful defaecation [Unknown]
  - Rectal haemorrhage [Unknown]
